FAERS Safety Report 17574003 (Version 6)
Quarter: 2020Q3

REPORT INFORMATION
  Report Type: Report from Study
  Country: CR (occurrence: CR)
  Receive Date: 20200323
  Receipt Date: 20200917
  Transmission Date: 20201102
  Serious: Yes (Other)
  Sender: FDA-Public Use
  Company Number: CR-INCYTE CORPORATION-2020IN002578

PATIENT

DRUGS (4)
  1. JAKAVI [Suspect]
     Active Substance: RUXOLITINIB
     Dosage: 5 MG, BID
     Route: 065
     Dates: start: 201909
  2. JAKAVI [Suspect]
     Active Substance: RUXOLITINIB
     Indication: APLASTIC ANAEMIA
     Dosage: 20 MG
     Route: 065
     Dates: start: 201804
  3. JAKAVI [Suspect]
     Active Substance: RUXOLITINIB
     Dosage: 20 MG
     Route: 065
  4. JAKAVI [Suspect]
     Active Substance: RUXOLITINIB
     Dosage: 40 MG, QD (20 MG IN MORNING AND 20 MG IN AFTERNOON)
     Route: 065

REACTIONS (10)
  - Haemoglobin decreased [Unknown]
  - Muscle spasms [Unknown]
  - Vaginal disorder [Unknown]
  - Immune system disorder [Unknown]
  - Intestinal prolapse [Unknown]
  - Product use in unapproved indication [Unknown]
  - Drug intolerance [Unknown]
  - Hypoaesthesia [Unknown]
  - Skeletal injury [Unknown]
  - Splenomegaly [Unknown]

NARRATIVE: CASE EVENT DATE: 201804
